FAERS Safety Report 7736571-7 (Version None)
Quarter: 2011Q3

REPORT INFORMATION
  Report Type: 
  Country: None (occurrence: None)
  Receive Date: 20110902
  Receipt Date: 20110826
  Transmission Date: 20111222
  Serious: Yes (Death, Other)
  Sender: FDA-Public Use
  Company Number: JPI-P-012948

PATIENT
  Age: 26 Year
  Sex: Male

DRUGS (9)
  1. UNSPECIFIED INHALER [Concomitant]
  2. TUBERSOL [Concomitant]
  3. PROPRANOLOL [Concomitant]
  4. ENERGY DRINKS [Concomitant]
  5. XYREM [Suspect]
     Indication: NARCOLEPSY
     Dosage: 4 GM (2 GM,2 IN 1 D),ORAL, (TITRATING DOSE),ORAL, 12 GM (6 GM,2 IN 1 D),ORAL, (6 GRAMS PLUS 3 GRAMS)
     Route: 048
     Dates: start: 20100930
  6. XYREM [Suspect]
     Indication: NARCOLEPSY
     Dosage: 4 GM (2 GM,2 IN 1 D),ORAL, (TITRATING DOSE),ORAL, 12 GM (6 GM,2 IN 1 D),ORAL, (6 GRAMS PLUS 3 GRAMS)
     Route: 048
     Dates: start: 20081027
  7. BUPRENORPHINE HCL AND NALOXONE HCL [Concomitant]
  8. RISPERIDONE [Concomitant]
  9. SUSTAINED RELEASE METHYLPHENIDATE [Concomitant]

REACTIONS (5)
  - DILATATION VENTRICULAR [None]
  - DYSPNOEA [None]
  - PALLOR [None]
  - CYANOSIS [None]
  - STATUS ASTHMATICUS [None]
